FAERS Safety Report 14669077 (Version 1)
Quarter: 2018Q1

REPORT INFORMATION
  Report Type: Spontaneous
  Country: JP (occurrence: JP)
  Receive Date: 20180322
  Receipt Date: 20180322
  Transmission Date: 20180509
  Serious: Yes (Other)
  Sender: FDA-Public Use
  Company Number: JP-REGENERON PHARMACEUTICALS, INC.-2017-21836

PATIENT

DRUGS (3)
  1. PLAVIX [Concomitant]
     Active Substance: CLOPIDOGREL BISULFATE
     Indication: CEREBRAL INFARCTION
     Dosage: UNK
     Dates: start: 201002
  2. EYLEA [Suspect]
     Active Substance: AFLIBERCEPT
     Indication: RETINAL VEIN OCCLUSION
     Dosage: 2MG RIHGT EYE, ONCE
     Route: 031
     Dates: start: 20170207, end: 20170207
  3. EYLEA [Suspect]
     Active Substance: AFLIBERCEPT
     Dosage: 2MG RIHGT EYE, ONCE
     Route: 031
     Dates: start: 20170711, end: 20170711

REACTIONS (4)
  - Subarachnoid haemorrhage [Recovering/Resolving]
  - Cerebral infarction [Recovering/Resolving]
  - Cerebral infarction [Unknown]
  - Carotid artery stenosis [Unknown]

NARRATIVE: CASE EVENT DATE: 20170725
